FAERS Safety Report 5390310-6 (Version None)
Quarter: 2007Q3

REPORT INFORMATION
  Report Type: 
  Country: None (occurrence: None)
  Receive Date: 20070718
  Receipt Date: 20070706
  Transmission Date: 20080115
  Serious: Yes (Hospitalization, Other)
  Sender: FDA-Public Use
  Company Number: CA-PFIZER INC-2007053700

PATIENT
  Age: 54 Year
  Sex: Male

DRUGS (4)
  1. DILANTIN [Suspect]
     Indication: GRAND MAL CONVULSION
     Route: 048
  2. DILANTIN [Suspect]
     Indication: GRAND MAL CONVULSION
     Route: 048
  3. BENYLIN DM-E [Concomitant]
  4. CLOBAZAM [Concomitant]

REACTIONS (3)
  - ANTICONVULSANT DRUG LEVEL DECREASED [None]
  - DRUG INEFFECTIVE [None]
  - GRAND MAL CONVULSION [None]
